FAERS Safety Report 9275626 (Version 1)
Quarter: 2013Q2

REPORT INFORMATION
  Report Type: Spontaneous
  Country: US (occurrence: US)
  Receive Date: 20130507
  Receipt Date: 20130507
  Transmission Date: 20140414
  Serious: Yes (Hospitalization, Other)
  Sender: FDA-Public Use
  Company Number: US-ELI_LILLY_AND_COMPANY-US201305000458

PATIENT
  Sex: Male
  Weight: 82.09 kg

DRUGS (1)
  1. HUMALOG LISPRO [Suspect]
     Route: 058

REACTIONS (6)
  - Intentional self-injury [Unknown]
  - Convulsion [Unknown]
  - Euphoric mood [Unknown]
  - Tremor [Unknown]
  - Blood glucose decreased [Unknown]
  - Blood glucose increased [Unknown]
